FAERS Safety Report 5876872-0 (Version None)
Quarter: 2008Q3

REPORT INFORMATION
  Report Type: 
  Country: None (occurrence: None)
  Receive Date: 20080818
  Receipt Date: 20080204
  Transmission Date: 20090109
  Serious: Yes (Hospitalization)
  Sender: FDA-Public Use
  Company Number: 20074148

PATIENT
  Age: 47 Year
  Sex: Female

DRUGS (1)
  1. LIORESAL [Suspect]
     Indication: MUSCLE SPASTICITY
     Dosage: 750-1000 MCG, DAILY, INTRATHECAL
     Route: 037

REACTIONS (3)
  - CONVULSION [None]
  - OVERDOSE [None]
  - SOMNOLENCE [None]
